FAERS Safety Report 6376699-X (Version None)
Quarter: 2009Q3

REPORT INFORMATION
  Report Type: 
  Country: None (occurrence: None)
  Receive Date: 20090925
  Receipt Date: 20090916
  Transmission Date: 20100115
  Serious: Yes (Death)
  Sender: FDA-Public Use
  Company Number: BR-ROCHE-657420

PATIENT
  Age: 34 Year
  Sex: Male

DRUGS (1)
  1. OSELTAMIVIR [Suspect]
     Route: 065
     Dates: start: 20090901, end: 20090901

REACTIONS (1)
  - DEATH [None]
